FAERS Safety Report 5216228-7 (Version None)
Quarter: 2006Q4

REPORT INFORMATION
  Report Type: 
  Country: None (occurrence: None)
  Receive Date: 20061122
  Receipt Date: 20060912
  Transmission Date: 20070319
  Serious: Yes (Other)
  Sender: FDA-Public Use
  Company Number: 2006111798

PATIENT
  Age: 42 Year
  Sex: Male
  Weight: 90.7194 kg

DRUGS (7)
  1. LIPITOR [Suspect]
     Indication: BLOOD CHOLESTEROL INCREASED
     Dosage: 80 MG
  2. LIPITOR [Suspect]
     Indication: OVERWEIGHT
     Dosage: 80 MG
  3. INSULIN [Concomitant]
  4. ASPIRIN [Concomitant]
  5. ATENOLOL [Concomitant]
  6. ZANTAC [Concomitant]
  7. ENALAPRIL MALEATE [Concomitant]

REACTIONS (1)
  - AMNESIA [None]
